FAERS Safety Report 11302761 (Version 1)
Quarter: 2015Q3

REPORT INFORMATION
  Report Type: Report from Study
  Country: US (occurrence: US)
  Receive Date: 20150723
  Receipt Date: 20150723
  Transmission Date: 20151125
  Serious: Yes (Death)
  Sender: FDA-Public Use
  Company Number: US-ASTELLAS-2015US018611

PATIENT
  Age: 73 Year
  Sex: Male

DRUGS (1)
  1. ERLOTINIB [Suspect]
     Active Substance: ERLOTINIB
     Indication: RESPIRATORY TRACT NEOPLASM

REACTIONS (3)
  - Death [Fatal]
  - Malaise [Unknown]
  - Dysphagia [Unknown]

NARRATIVE: CASE EVENT DATE: 20050322
